FAERS Safety Report 7300417-1 (Version None)
Quarter: 2011Q1

REPORT INFORMATION
  Report Type: 
  Country: None (occurrence: None)
  Receive Date: 20110217
  Receipt Date: 20110211
  Transmission Date: 20110831
  Serious: Yes (Death, Other)
  Sender: FDA-Public Use
  Company Number: PHEH2006US08869

PATIENT
  Sex: Female

DRUGS (13)
  1. ZOMETA [Suspect]
  2. SYNTHROID [Concomitant]
  3. TYLENOL [Concomitant]
  4. NEXIUM [Concomitant]
  5. DIGOXIN [Concomitant]
  6. ROXANOL [Concomitant]
  7. LORAZEPAM [Concomitant]
  8. LYRICA [Concomitant]
  9. MIRALAX [Concomitant]
  10. SENNA [Concomitant]
  11. AREDIA [Suspect]
  12. TOPROL-XL [Concomitant]
  13. COLACE [Concomitant]

REACTIONS (17)
  - BETA 2 MICROGLOBULIN INCREASED [None]
  - INTERVERTEBRAL DISC DEGENERATION [None]
  - PAIN [None]
  - DECREASED INTEREST [None]
  - GENERAL PHYSICAL HEALTH DETERIORATION [None]
  - ATROPHY [None]
  - ARRHYTHMIA [None]
  - ANXIETY [None]
  - SINUSITIS [None]
  - HAEMATOMA [None]
  - DEATH [None]
  - DEEP VEIN THROMBOSIS [None]
  - BONE DISORDER [None]
  - RENAL FAILURE CHRONIC [None]
  - OSTEONECROSIS OF JAW [None]
  - LOOSE TOOTH [None]
  - GINGIVAL ULCERATION [None]
